FAERS Safety Report 8440187-7 (Version None)
Quarter: 2012Q2

REPORT INFORMATION
  Report Type: 
  Country: None (occurrence: None)
  Receive Date: 20120615
  Receipt Date: 20120604
  Transmission Date: 20120825
  Serious: Yes (Other)
  Sender: FDA-Public Use
  Company Number: CA-ROCHE-1075267

PATIENT
  Sex: Female
  Weight: 123.94 kg

DRUGS (4)
  1. ACTEMRA [Suspect]
     Indication: RHEUMATOID ARTHRITIS
     Route: 042
     Dates: start: 20110225
  2. ZESTORETIC [Concomitant]
  3. PREDNISONE TAB [Concomitant]
  4. CENTRUM [Concomitant]

REACTIONS (2)
  - KNEE ARTHROPLASTY [None]
  - PROCEDURAL HAEMORRHAGE [None]
